FAERS Safety Report 16196734 (Version 1)
Quarter: 2019Q2

REPORT INFORMATION
  Report Type: Spontaneous
  Country: US (occurrence: US)
  Receive Date: 20190311
  Receipt Date: 20190311
  Transmission Date: 20190711
  Serious: Yes (Other)
  Sender: FDA-Public Use
  Company Number: None

PATIENT
  Age: 35 Year
  Sex: Female

DRUGS (7)
  1. FISH OIL [Concomitant]
     Active Substance: FISH OIL
  2. TYLENON [Concomitant]
  3. VITAMIN B6 [Concomitant]
     Active Substance: PYRIDOXINE HYDROCHLORIDE
  4. NEULASTA [Suspect]
     Active Substance: PEGFILGRASTIM
     Indication: INFANTILE GENETIC AGRANULOCYTOSIS
     Route: 058
     Dates: start: 20170329
  5. PRENATAL MULTI [Concomitant]
  6. FOLIC ACID. [Concomitant]
     Active Substance: FOLIC ACID
  7. FIBER TAB [Concomitant]

REACTIONS (2)
  - Exposure during pregnancy [None]
  - Bone pain [None]
